FAERS Safety Report 12063012 (Version 1)
Quarter: 2016Q1

REPORT INFORMATION
  Report Type: Spontaneous
  Country: US (occurrence: US)
  Receive Date: 20160210
  Receipt Date: 20160210
  Transmission Date: 20160526
  Serious: No
  Sender: FDA-Public Use
  Company Number: US-ALLERGAN-1506116US

PATIENT
  Sex: Female
  Weight: 82.54 kg

DRUGS (12)
  1. BOTOX [Suspect]
     Active Substance: ONABOTULINUMTOXINA
     Dosage: 20 UNITS, UNK
     Route: 030
     Dates: start: 20150107, end: 20150107
  2. BOTOX [Suspect]
     Active Substance: ONABOTULINUMTOXINA
     Dosage: 15 UNITS, SINGLE
     Route: 030
     Dates: start: 20150107, end: 20150107
  3. ZOFRAN [Concomitant]
     Active Substance: ONDANSETRON HYDROCHLORIDE
     Indication: NAUSEA
     Route: 048
  4. MAXALT [Concomitant]
     Active Substance: RIZATRIPTAN BENZOATE
     Indication: HEADACHE
     Dosage: UNK
     Route: 048
  5. TOPIRAMATE. [Suspect]
     Active Substance: TOPIRAMATE
     Indication: HEADACHE
     Dosage: 100 MG, BID
     Route: 048
  6. GABAPENTIN. [Concomitant]
     Active Substance: GABAPENTIN
     Indication: HEADACHE
     Dosage: 300 MG, QD
     Route: 048
  7. BOTOX [Suspect]
     Active Substance: ONABOTULINUMTOXINA
     Indication: MIGRAINE
     Dosage: 5 UNITS, SINGLE
     Route: 030
     Dates: start: 20150107, end: 20150107
  8. ZOFRAN [Concomitant]
     Active Substance: ONDANSETRON HYDROCHLORIDE
     Indication: VOMITING
  9. BOTOX [Suspect]
     Active Substance: ONABOTULINUMTOXINA
     Dosage: 5 UNITS, SINGLE
     Route: 030
     Dates: start: 20150107, end: 20150107
  10. BOTOX [Suspect]
     Active Substance: ONABOTULINUMTOXINA
     Dosage: 12.5 UNITS, SINGLE
     Route: 030
     Dates: start: 20150107, end: 20150107
  11. BOTOX [Suspect]
     Active Substance: ONABOTULINUMTOXINA
     Dosage: 20 UNITS, SINGLE
     Route: 030
     Dates: start: 20150107, end: 20150107
  12. BOTOX [Suspect]
     Active Substance: ONABOTULINUMTOXINA
     Dosage: 10 UNITS, SINGLE
     Route: 030
     Dates: start: 20150107, end: 20150107

REACTIONS (1)
  - Acne [Unknown]
